FAERS Safety Report 16123773 (Version 3)
Quarter: 2019Q4

REPORT INFORMATION
  Report Type: Spontaneous
  Country: TR (occurrence: TR)
  Receive Date: 20190327
  Receipt Date: 20191002
  Transmission Date: 20200122
  Serious: Yes (Other)
  Sender: FDA-Public Use
  Company Number: TR-PFIZER INC-2019130732

PATIENT
  Age: 66 Year
  Sex: Male

DRUGS (8)
  1. TRAMADOL. [Interacting]
     Active Substance: TRAMADOL
     Indication: PROCEDURAL PAIN
  2. GABAPENTIN. [Suspect]
     Active Substance: GABAPENTIN
     Indication: PAIN MANAGEMENT
     Dosage: 300 MG, 3X/DAY
     Route: 048
  3. INSULIN [Concomitant]
     Active Substance: INSULIN NOS
     Dosage: UNK
  4. GABAPENTIN. [Interacting]
     Active Substance: GABAPENTIN
     Indication: PROCEDURAL PAIN
  5. TRAMADOL. [Interacting]
     Active Substance: TRAMADOL
     Indication: PAIN MANAGEMENT
     Dosage: 100 MG, 1X/DAY
     Route: 042
  6. HYDROCHLOROTHIAZIDE/TELMISARTAN [Concomitant]
     Dosage: UNK
  7. AMLODIPINE [Concomitant]
     Active Substance: AMLODIPINE BESYLATE
     Dosage: UNK
  8. ALBUTEROL [SALBUTAMOL] [Concomitant]
     Active Substance: ALBUTEROL
     Dosage: UNK

REACTIONS (2)
  - Drug interaction [Recovering/Resolving]
  - Serotonin syndrome [Recovering/Resolving]
